FAERS Safety Report 5377180-7 (Version None)
Quarter: 2007Q3

REPORT INFORMATION
  Report Type: 
  Country: None (occurrence: None)
  Receive Date: 20070703
  Receipt Date: 20070621
  Transmission Date: 20080115
  Serious: Yes (Hospitalization)
  Sender: FDA-Public Use
  Company Number: US-ELI_LILLY_AND_COMPANY-US200706005637

PATIENT
  Age: 9 Year
  Sex: Male
  Weight: 29.478 kg

DRUGS (1)
  1. HUMATROPE [Suspect]
     Indication: GROWTH RETARDATION
     Dosage: 1.4 MG, DAILY (1/D)
     Dates: start: 20040101

REACTIONS (1)
  - SPONTANEOUS PENILE ERECTION [None]
